FAERS Safety Report 9852664 (Version 1)
Quarter: 2014Q1

REPORT INFORMATION
  Report Type: Spontaneous
  Country: US (occurrence: US)
  Receive Date: 20140129
  Receipt Date: 20140129
  Transmission Date: 20141002
  Serious: No
  Sender: FDA-Public Use
  Company Number: US-PFIZER INC-2014024536

PATIENT
  Age: 50 Year
  Sex: Male
  Weight: 85.26 kg

DRUGS (1)
  1. CAVERJECT [Suspect]
     Dosage: UNK, AS NEEDED
     Dates: start: 201311

REACTIONS (1)
  - Drug ineffective [Unknown]
